FAERS Safety Report 5782035-X (Version None)
Quarter: 2008Q2

REPORT INFORMATION
  Report Type: 
  Country: None (occurrence: None)
  Receive Date: 20080623
  Receipt Date: 20080613
  Transmission Date: 20081010
  Serious: Yes (Disabling)
  Sender: FDA-Public Use
  Company Number: FR-MERCK-0805FRA00088

PATIENT
  Age: 33 Year
  Sex: Male

DRUGS (3)
  1. SINGULAIR [Suspect]
     Indication: ASTHMA
     Route: 048
     Dates: start: 20080429, end: 20080506
  2. DESLORATADINE [Concomitant]
     Route: 048
     Dates: end: 20080506
  3. PREDNISOLONE SODIUM METASULFOBENZOATE [Concomitant]
     Route: 048
     Dates: end: 20080506

REACTIONS (3)
  - ALANINE AMINOTRANSFERASE INCREASED [None]
  - GAMMA-GLUTAMYLTRANSFERASE INCREASED [None]
  - TENOSYNOVITIS [None]
